FAERS Safety Report 9569142 (Version 1)
Quarter: 2013Q3

REPORT INFORMATION
  Report Type: Spontaneous
  Country: US (occurrence: US)
  Receive Date: 20130930
  Receipt Date: 20130930
  Transmission Date: 20140515
  Serious: No
  Sender: FDA-Public Use
  Company Number: US-AMGEN-USASP2013058722

PATIENT
  Age: 36 Year
  Sex: Female
  Weight: 77.1 kg

DRUGS (12)
  1. ENBREL [Suspect]
     Indication: PRODUCT USED FOR UNKNOWN INDICATION
     Dosage: 50 MG, QWK
     Route: 058
  2. KLONOPIN [Concomitant]
     Dosage: 1 MG, UNK
  3. PLAQUENIL                          /00072602/ [Concomitant]
     Dosage: 200 MG, UNK
  4. HUMIRA [Concomitant]
     Dosage: 40 MG/0.8, UNK
  5. LAMICTAL [Concomitant]
     Dosage: 100 MG, UNK
  6. SEROQUEL [Concomitant]
     Dosage: 150 MG, UNK
  7. LUNESTA [Concomitant]
     Dosage: 1 MG, UNK
  8. MULTIVITAMINS, PLAIN [Concomitant]
     Dosage: UNK
  9. FOLIC ACID [Concomitant]
     Dosage: UNK
  10. OMEGA 3                            /01333901/ [Concomitant]
     Dosage: 1000 MG, UNK
  11. EVOXAC [Concomitant]
     Dosage: 30 MG, UNK
  12. NUVIGIL [Concomitant]
     Dosage: 150 MG, UNK

REACTIONS (1)
  - Drug ineffective [Unknown]
